FAERS Safety Report 9818792 (Version 3)
Quarter: 2014Q1

REPORT INFORMATION
  Report Type: Spontaneous
  Country: US (occurrence: US)
  Receive Date: 20140115
  Receipt Date: 20140120
  Transmission Date: 20141002
  Serious: Yes (Death, Life-Threatening, Hospitalization, Other)
  Sender: FDA-Public Use
  Company Number: US-MERCK-1401USA004785

PATIENT
  Sex: Male
  Weight: 111.11 kg

DRUGS (6)
  1. JANUVIA [Suspect]
     Indication: DIABETES MELLITUS
     Dosage: 100 MG, QD
     Route: 048
     Dates: start: 20090731
  2. METFORMIN [Concomitant]
     Indication: DIABETES MELLITUS
     Dosage: 500 MG, BID
     Route: 048
  3. ACTOS [Concomitant]
     Indication: DIABETES MELLITUS
  4. INSULIN [Concomitant]
     Indication: DIABETES MELLITUS
  5. CRESTOR [Concomitant]
     Indication: DIABETES MELLITUS
     Dosage: 20 MG, QD
  6. GLIPIZIDE [Concomitant]
     Indication: TYPE 2 DIABETES MELLITUS

REACTIONS (8)
  - Pancreatic carcinoma [Fatal]
  - Metastases to liver [Unknown]
  - Viral infection [Unknown]
  - Depression [Unknown]
  - Hyperlipidaemia [Unknown]
  - Hypertension [Unknown]
  - Treatment noncompliance [Unknown]
  - Back pain [Unknown]
